FAERS Safety Report 5653479-1 (Version None)
Quarter: 2008Q1

REPORT INFORMATION
  Report Type: 
  Country: None (occurrence: None)
  Receive Date: 20080131
  Receipt Date: 20071018
  Transmission Date: 20080703
  Serious: No
  Sender: FDA-Public Use
  Company Number: US200710005876

PATIENT
  Age: 65 Year
  Sex: Female

DRUGS (5)
  1. BYETTA [Suspect]
     Dosage: 5 UG, 2/D, SUBCUTANEOUS; 5 UG, EACH MORNING, SUBCUTANEOUS
     Route: 058
     Dates: start: 20070701, end: 20070801
  2. BYETTA [Suspect]
     Dosage: 5 UG, 2/D, SUBCUTANEOUS; 5 UG, EACH MORNING, SUBCUTANEOUS
     Route: 058
     Dates: start: 20070801
  3. BYETTA [Suspect]
  4. GLIPIZIDE [Concomitant]
  5. ACTOS /USA/ (PIOGLITAZONE HYDROCHLORIDE) [Concomitant]

REACTIONS (7)
  - BLOOD GLUCOSE DECREASED [None]
  - FEELING ABNORMAL [None]
  - FEELING COLD [None]
  - NAUSEA [None]
  - PRURITUS [None]
  - SOMNOLENCE [None]
  - TREMOR [None]
